FAERS Safety Report 4722897-8 (Version None)
Quarter: 2005Q3

REPORT INFORMATION
  Report Type: 
  Country: None (occurrence: None)
  Receive Date: 20050722
  Receipt Date: 20050627
  Transmission Date: 20060218
  Serious: Yes (Hospitalization)
  Sender: FDA-Public Use
  Company Number: BE-ABBOTT-05P-013-0304201-00

PATIENT
  Sex: Male

DRUGS (4)
  1. DEPAKENE [Suspect]
     Indication: EPILEPSY
     Route: 048
  2. TOPIRAMATE [Interacting]
     Indication: EPILEPSY
     Route: 065
     Dates: end: 20041224
  3. TOPIRAMATE [Interacting]
     Route: 065
     Dates: start: 20040809
  4. OXCARBAZEPINE [Concomitant]
     Indication: EPILEPSY
     Route: 048

REACTIONS (4)
  - APATHY [None]
  - DRUG INTERACTION [None]
  - HYPOTHERMIA [None]
  - PROSTRATION [None]
